FAERS Safety Report 20699498 (Version 2)
Quarter: 2022Q2

REPORT INFORMATION
  Report Type: Spontaneous
  Country: DE (occurrence: DE)
  Receive Date: 20220412
  Receipt Date: 20220427
  Transmission Date: 20220721
  Serious: Yes (Other)
  Sender: FDA-Public Use
  Company Number: DE-002147023-NVSC2022DE048212

PATIENT
  Age: 74 Year
  Sex: Female

DRUGS (6)
  1. GLIMEPIRIDE [Suspect]
     Active Substance: GLIMEPIRIDE
     Indication: Product used for unknown indication
     Dosage: UNK UNK, QD
     Route: 065
  2. ASPIRIN [Suspect]
     Active Substance: ASPIRIN
     Indication: Product used for unknown indication
     Dosage: 1 DOSAGE FORM, QD,(ACETYLSALICYLIC ACID 100) 1 DOSAGE FORM, QD
     Route: 065
  3. METFORMIN [Suspect]
     Active Substance: METFORMIN HYDROCHLORIDE
     Indication: Product used for unknown indication
     Dosage: QD (1000 OT, BID (IN THE MORNING AND EVENING))
     Route: 065
  4. LEVOTHYROXINE [Suspect]
     Active Substance: LEVOTHYROXINE
     Indication: Product used for unknown indication
     Dosage: UNK, QD (100, OT, QD)
     Route: 065
  5. VERAPAMIL HYDROCHLORIDE [Suspect]
     Active Substance: VERAPAMIL HYDROCHLORIDE
     Indication: Blood pressure measurement
     Dosage: 2 DOSAGE FORM, QD (1 DOSAGE FORM, BID)
     Route: 048
  6. BENZTHIAZIDE\TRIAMTERENE [Suspect]
     Active Substance: BENZTHIAZIDE\TRIAMTERENE
     Indication: Product used for unknown indication
     Dosage: UNK, PRN
     Route: 065

REACTIONS (4)
  - Dry age-related macular degeneration [Unknown]
  - Diabetes mellitus [Unknown]
  - Abdominal pain [Recovered/Resolved]
  - Diarrhoea [Recovered/Resolved]
